FAERS Safety Report 10505555 (Version 2)
Quarter: 2014Q4

REPORT INFORMATION
  Report Type: Spontaneous
  Country: PL (occurrence: PL)
  Receive Date: 20141008
  Receipt Date: 20141015
  Transmission Date: 20150528
  Serious: Yes (Other)
  Sender: FDA-Public Use
  Company Number: PL-ASTELLAS-2014US014253

PATIENT
  Age: 77 Year
  Sex: Female

DRUGS (4)
  1. ERLOTINIB [Suspect]
     Active Substance: ERLOTINIB
     Indication: LUNG ADENOCARCINOMA
     Route: 048
  2. CYCLONAMINE [Concomitant]
     Active Substance: ETHAMSYLATE
     Indication: PRODUCT USED FOR UNKNOWN INDICATION
     Dosage: UNK UNK, UNKNOWN FREQ.
     Route: 065
  3. IPP                                /00661201/ [Concomitant]
     Indication: PRODUCT USED FOR UNKNOWN INDICATION
     Dosage: UNK UNK, UNKNOWN FREQ.
     Route: 065
  4. ERLOTINIB [Suspect]
     Active Substance: ERLOTINIB
     Route: 065

REACTIONS (19)
  - Vision blurred [Not Recovered/Not Resolved]
  - Madarosis [Recovered/Resolved]
  - Diarrhoea [Recovered/Resolved]
  - Extraocular muscle paresis [Recovered/Resolved]
  - Hair texture abnormal [Recovered/Resolved]
  - Eye pain [Recovered/Resolved]
  - Eczema [Recovered/Resolved]
  - Hair growth abnormal [Unknown]
  - Peripheral swelling [Not Recovered/Not Resolved]
  - Hyperhidrosis [Recovered/Resolved]
  - Cough [Recovered/Resolved]
  - Dry eye [Recovered/Resolved]
  - Palpitations [Not Recovered/Not Resolved]
  - Skin infection [Recovered/Resolved]
  - Rash pustular [Recovered/Resolved]
  - Dry skin [Recovered/Resolved]
  - Joint stiffness [Not Recovered/Not Resolved]
  - Vascular rupture [Unknown]
  - Urticaria [Recovered/Resolved]
